FAERS Safety Report 25964649 (Version 1)
Quarter: 2025Q4

REPORT INFORMATION
  Report Type: Spontaneous
  Country: US (occurrence: US)
  Receive Date: 20251027
  Receipt Date: 20251027
  Transmission Date: 20260118
  Serious: Yes (Death, Hospitalization, Other)
  Sender: PFIZER
  Company Number: US-PFIZER INC-202500210420

PATIENT
  Age: 61 Year
  Sex: Male
  Weight: 120.66 kg

DRUGS (1)
  1. DAURISMO [Suspect]
     Active Substance: GLASDEGIB
     Indication: Acute myeloid leukaemia
     Dosage: UNK, 1X/DAY (1 TABLET ONCE A DAY)
     Dates: start: 2025, end: 202510

REACTIONS (3)
  - Acute myeloid leukaemia [Fatal]
  - Malignant neoplasm progression [Fatal]
  - Metastases to bone marrow [Fatal]
